FAERS Safety Report 7479659 (Version 3)
Quarter: 2020Q3

REPORT INFORMATION
  Report Type: Spontaneous
  Country: DE (occurrence: DE)
  Receive Date: 20100716
  Receipt Date: 20101129
  Transmission Date: 20201105
  Serious: Yes (Hospitalization)
  Sender: FDA-Public Use
  Company Number: DE-ROCHE-715074

PATIENT
  Age: 65 Year
  Sex: Female
  Weight: 65 kg

DRUGS (19)
  1. XELODA [Suspect]
     Active Substance: CAPECITABINE
     Route: 048
     Dates: end: 20100615
  2. CARBIMAZOLE [Concomitant]
     Active Substance: CARBIMAZOLE
     Indication: HYPERTHYROIDISM
     Dosage: 1?0?0
  3. DUROGESIC [Concomitant]
     Active Substance: FENTANYL
     Indication: PAIN
  4. TAXOL [Concomitant]
     Active Substance: PACLITAXEL
     Dosage: DOSING DAILY, RECEIVED 8 DOSES
     Route: 042
     Dates: start: 20080313, end: 20080508
  5. EPIRUBICIN [Concomitant]
     Active Substance: EPIRUBICIN
     Dosage: RECEIVED 4 CYCLES
     Route: 042
     Dates: start: 20050121, end: 20050218
  6. IBANDRONIC ACID. [Suspect]
     Active Substance: IBANDRONIC ACID
     Route: 042
     Dates: start: 20060126, end: 20100601
  7. IBANDRONIC ACID. [Suspect]
     Active Substance: IBANDRONIC ACID
     Dosage: THE PATIENT HAD RECEIVED 69 CYCLES UNTILL JULY 2010
     Route: 042
  8. IBANDRONIC ACID. [Suspect]
     Active Substance: IBANDRONIC ACID
     Route: 042
     Dates: start: 20041028
  9. AMITRIPTYLINE HYDROCHLORIDE. [Concomitant]
     Active Substance: AMITRIPTYLINE HYDROCHLORIDE
     Indication: DEPRESSION
     Dosage: 0?0?1
  10. AROMASIN [Concomitant]
     Active Substance: EXEMESTANE
     Dosage: DAILY
     Route: 048
     Dates: start: 20080610, end: 20081211
  11. VINORELBINE [Concomitant]
     Active Substance: VINORELBINE TARTRATE
     Dosage: RECEIVED 12 CYCLES
     Route: 042
     Dates: start: 20050225, end: 20050708
  12. CAELYX [Concomitant]
     Active Substance: DOXORUBICIN HYDROCHLORIDE
     Dosage: RECEIVED 3 CYCLES
     Route: 042
     Dates: start: 20071214, end: 20080207
  13. BELOC?ZOK [Concomitant]
     Active Substance: METOPROLOL SUCCINATE
     Indication: HYPERTENSION
     Dosage: 1?0?0
  14. VENLAFAXINE HYDROCHLORIDE. [Concomitant]
     Active Substance: VENLAFAXINE HYDROCHLORIDE
     Indication: DEPRESSION
     Dosage: 1?0?0
  15. FASLODEX [Concomitant]
     Active Substance: FULVESTRANT
     Dosage: RECEIVED 4 CYCLES
     Route: 030
     Dates: start: 20070503, end: 20070726
  16. PANTOZOL [Concomitant]
     Active Substance: PANTOPRAZOLE SODIUM
     Dosage: 1?0?0
  17. FEMARA [Concomitant]
     Active Substance: LETROZOLE
     Dosage: FREQUENCY DAILY
     Route: 048
     Dates: start: 200411, end: 200501
  18. AVASTIN [Suspect]
     Active Substance: BEVACIZUMAB
     Dosage: ONE YEAR THERAPY PRIOR TO THE EVENT,THE PATIENT HAD RECEIVED 28 CYCLES UNTILL JULY 2010
     Route: 042
     Dates: start: 20090417, end: 20100615
  19. XELODA [Suspect]
     Active Substance: CAPECITABINE
     Dosage: ONE YEAR THERAPY PRIOR TO THE EVENT,THE PATIENT HAD RECEIVED 26 CYCLES.
     Route: 048
     Dates: start: 20090417, end: 20100518

REACTIONS (1)
  - Leukoencephalopathy [Unknown]

NARRATIVE: CASE EVENT DATE: 20100701
